FAERS Safety Report 13621962 (Version 1)
Quarter: 2017Q2

REPORT INFORMATION
  Report Type: Spontaneous
  Country: US (occurrence: US)
  Receive Date: 20170607
  Receipt Date: 20170607
  Transmission Date: 20170830
  Serious: No
  Sender: FDA-Public Use
  Company Number: US-ROCHE-1898411

PATIENT
  Age: 50 Year
  Sex: Female
  Weight: 68.1 kg

DRUGS (1)
  1. CAPECITABINE. [Suspect]
     Active Substance: CAPECITABINE
     Indication: BREAST CANCER
     Route: 065
     Dates: start: 201609, end: 201612

REACTIONS (6)
  - Rash pruritic [Recovering/Resolving]
  - Diarrhoea [Recovering/Resolving]
  - Blister [Recovering/Resolving]
  - Drug hypersensitivity [Unknown]
  - Stomatitis [Recovering/Resolving]
  - Dysgeusia [Recovering/Resolving]

NARRATIVE: CASE EVENT DATE: 201701
